FAERS Safety Report 9103998 (Version 1)
Quarter: 2013Q1

REPORT INFORMATION
  Report Type: Spontaneous
  Country: ID (occurrence: ID)
  Receive Date: 20130219
  Receipt Date: 20130219
  Transmission Date: 20140127
  Serious: Yes (Death, Hospitalization)
  Sender: FDA-Public Use
  Company Number: PHHY2013ID015109

PATIENT
  Age: 25 Year
  Sex: Female

DRUGS (2)
  1. GLIVEC [Suspect]
     Indication: CHRONIC MYELOID LEUKAEMIA
     Dosage: 100 MG, QID
     Route: 048
     Dates: start: 201208, end: 201212
  2. GLIVEC [Suspect]
     Dosage: 100 MG, TID
     Route: 048
     Dates: start: 201212

REACTIONS (3)
  - Death [Fatal]
  - Leukocytosis [Unknown]
  - Pyrexia [Unknown]
